FAERS Safety Report 25761752 (Version 1)
Quarter: 2025Q3

REPORT INFORMATION
  Report Type: Spontaneous
  Country: US (occurrence: US)
  Receive Date: 20250904
  Receipt Date: 20250904
  Transmission Date: 20251020
  Serious: Yes (Other)
  Sender: ELI LILLY AND COMPANY
  Company Number: US-ELI_LILLY_AND_COMPANY-US202509001425

PATIENT
  Age: 74 Year
  Sex: Female

DRUGS (12)
  1. ZEPBOUND [Suspect]
     Active Substance: TIRZEPATIDE
     Indication: Weight control
     Route: 065
     Dates: start: 202502
  2. ZEPBOUND [Suspect]
     Active Substance: TIRZEPATIDE
     Indication: Weight control
     Route: 065
     Dates: start: 202502
  3. ZEPBOUND [Suspect]
     Active Substance: TIRZEPATIDE
     Indication: Weight control
     Route: 065
     Dates: start: 202502
  4. ZEPBOUND [Suspect]
     Active Substance: TIRZEPATIDE
     Indication: Weight control
     Route: 065
     Dates: start: 202502
  5. ZEPBOUND [Suspect]
     Active Substance: TIRZEPATIDE
     Route: 065
  6. ZEPBOUND [Suspect]
     Active Substance: TIRZEPATIDE
     Route: 065
  7. ZEPBOUND [Suspect]
     Active Substance: TIRZEPATIDE
     Route: 065
  8. ZEPBOUND [Suspect]
     Active Substance: TIRZEPATIDE
     Route: 065
  9. ZEPBOUND [Suspect]
     Active Substance: TIRZEPATIDE
     Route: 065
     Dates: start: 202508
  10. ZEPBOUND [Suspect]
     Active Substance: TIRZEPATIDE
     Route: 065
     Dates: start: 202508
  11. ZEPBOUND [Suspect]
     Active Substance: TIRZEPATIDE
     Route: 065
     Dates: start: 202508
  12. ZEPBOUND [Suspect]
     Active Substance: TIRZEPATIDE
     Route: 065
     Dates: start: 202508

REACTIONS (1)
  - Cyst [Unknown]
